FAERS Safety Report 6886424-1 (Version None)
Quarter: 2010Q3

REPORT INFORMATION
  Report Type: 
  Country: None (occurrence: None)
  Receive Date: 20100729
  Receipt Date: 20090408
  Transmission Date: 20110219
  Serious: No
  Sender: FDA-Public Use
  Company Number: US-PFIZER INC-2009195792

PATIENT
  Sex: Male
  Weight: 83.9 kg

DRUGS (4)
  1. CELEBREX [Suspect]
     Indication: DEPRESSION
     Route: 048
     Dates: start: 20070101, end: 20090408
  2. PLAVIX [Concomitant]
     Indication: CARDIAC DISORDER
     Dosage: UNK
  3. TOPROL-XL [Concomitant]
     Indication: HYPERTENSION
     Dosage: UNK
  4. METOPROLOL [Concomitant]
     Dosage: UNK

REACTIONS (1)
  - RASH [None]
